FAERS Safety Report 24807276 (Version 1)
Quarter: 2025Q1

REPORT INFORMATION
  Report Type: Spontaneous
  Country: GB (occurrence: GB)
  Receive Date: 20250105
  Receipt Date: 20250105
  Transmission Date: 20250408
  Serious: Yes (Other)
  Sender: AUROBINDO
  Company Number: GB-MHRA-MED-202412211647258840-MCVDH

PATIENT
  Sex: Female

DRUGS (2)
  1. CLARITHROMYCIN [Suspect]
     Active Substance: CLARITHROMYCIN
     Indication: Product used for unknown indication
     Dosage: 500 MILLIGRAM, TWO TIMES A DAY
     Route: 065
     Dates: start: 20241219
  2. LUPRON DEPOT [Concomitant]
     Active Substance: LEUPROLIDE ACETATE
     Indication: Uterine leiomyoma
     Route: 065
     Dates: start: 20231222

REACTIONS (4)
  - Visual impairment [Recovered/Resolved]
  - Taste disorder [Not Recovered/Not Resolved]
  - Tinnitus [Recovering/Resolving]
  - Nightmare [Recovered/Resolved]

NARRATIVE: CASE EVENT DATE: 20241220
